FAERS Safety Report 10393550 (Version 3)
Quarter: 2014Q3

REPORT INFORMATION
  Report Type: Spontaneous
  Country: TR (occurrence: TR)
  Receive Date: 20140819
  Receipt Date: 20140826
  Transmission Date: 20150326
  Serious: Yes (Hospitalization, Other)
  Sender: FDA-Public Use
  Company Number: TR-PFIZER INC-2014197600

PATIENT
  Age: 75 Year
  Sex: Female

DRUGS (5)
  1. VFEND [Suspect]
     Active Substance: VORICONAZOLE
     Dosage: 200 MG, DAILY
     Dates: start: 20140709, end: 20140711
  2. VFEND [Suspect]
     Active Substance: VORICONAZOLE
     Dosage: 6 GTT, UNK
  3. VFEND [Suspect]
     Active Substance: VORICONAZOLE
     Indication: FUNGAL INFECTION
     Dosage: 200 MG, 2X/DAY
     Dates: start: 201407, end: 20140709
  4. ULTRALAN [Concomitant]
     Dosage: 5 MG, UNK
  5. VFEND [Suspect]
     Active Substance: VORICONAZOLE
     Indication: FUNGAL INFECTION
     Dosage: 200 MG, UNK

REACTIONS (10)
  - Wheezing [Recovered/Resolved]
  - Hallucination [Recovered/Resolved]
  - Intentional product misuse [Unknown]
  - Vision blurred [Recovered/Resolved]
  - Balance disorder [Recovered/Resolved]
  - Vertigo [Not Recovered/Not Resolved]
  - Blood test abnormal [Unknown]
  - Memory impairment [Not Recovered/Not Resolved]
  - Dyspnoea [Recovered/Resolved]
  - Speech disorder [Recovered/Resolved]

NARRATIVE: CASE EVENT DATE: 20140704
